FAERS Safety Report 7653878-2 (Version None)
Quarter: 2011Q3

REPORT INFORMATION
  Report Type: 
  Country: None (occurrence: None)
  Receive Date: 20110801
  Receipt Date: 20110801
  Transmission Date: 20111222
  Serious: Yes (Hospitalization)
  Sender: FDA-Public Use
  Company Number: None

PATIENT
  Sex: Male
  Weight: 69 kg

DRUGS (9)
  1. DOXORUBICIN HYDROCHLORIDE [Suspect]
     Dosage: 112 MG
  2. FILGRASTIM [Concomitant]
  3. RITUXIMAB (MOAB C2B8 ANTI CD20, CHIMERIC) [Suspect]
     Dosage: 660 MG
  4. ETOPOSIDE [Suspect]
     Dosage: 560 MG
  5. PREDNISONE [Suspect]
     Dosage: 500 MG
  6. LOEAZEPAM [Concomitant]
  7. CYCLOPHOSPHAMIDE [Suspect]
     Dosage: 2120 MG
  8. OMEPRAZOLE [Concomitant]
  9. VINCRISTINE SULFATE [Suspect]
     Dosage: 2.8 MG

REACTIONS (1)
  - APPENDICITIS [None]
